FAERS Safety Report 21586657 (Version 1)
Quarter: 2022Q4

REPORT INFORMATION
  Report Type: Spontaneous
  Country: BE (occurrence: BE)
  Receive Date: 20221113
  Receipt Date: 20221113
  Transmission Date: 20230113
  Serious: Yes (Other)
  Sender: FDA-Public Use
  Company Number: BE-CELLTRION HEALTHCARE HUNGARY KFT-2022BE018728

PATIENT
  Age: 61 Year
  Sex: Female

DRUGS (1)
  1. REMICADE [Suspect]
     Active Substance: INFLIXIMAB
     Indication: Crohn^s disease
     Dosage: 2 MONTHS
     Route: 041

REACTIONS (1)
  - Pneumocystis jirovecii pneumonia [Unknown]
